FAERS Safety Report 23896522 (Version 1)
Quarter: 2024Q2

REPORT INFORMATION
  Report Type: Spontaneous
  Country: US (occurrence: US)
  Receive Date: 20240524
  Receipt Date: 20240524
  Transmission Date: 20240716
  Serious: No
  Sender: FDA-Public Use
  Company Number: US-JNJFOC-20240485884

PATIENT
  Sex: Male

DRUGS (1)
  1. MENS ROGAINE EXTRA STRENGTH [Suspect]
     Active Substance: MINOXIDIL
     Indication: Alopecia
     Dosage: USED ENOUGH TO COVER HEAD, DEPENDING ON THE TEMPERATURE IT WAS
     Route: 061

REACTIONS (4)
  - Alopecia [Unknown]
  - Product administered at inappropriate site [Unknown]
  - Product dose omission issue [Unknown]
  - Incorrect dose administered [Unknown]
